FAERS Safety Report 9753261 (Version 3)
Quarter: 2015Q3

REPORT INFORMATION
  Report Type: Spontaneous
  Country: US (occurrence: US)
  Receive Date: 20131213
  Receipt Date: 20150805
  Transmission Date: 20151125
  Serious: No
  Sender: FDA-Public Use
  Company Number: US-GILEAD-2010-0027335

PATIENT
  Age: 64 Year
  Sex: Female

DRUGS (23)
  1. TOPAMAX [Concomitant]
     Active Substance: TOPIRAMATE
  2. FE-TINIC [Concomitant]
     Active Substance: VITAMINS
  3. PROTONIX [Concomitant]
     Active Substance: PANTOPRAZOLE SODIUM
  4. BUSPIRONE [Concomitant]
     Active Substance: BUSPIRONE HYDROCHLORIDE
  5. LETAIRIS [Suspect]
     Active Substance: AMBRISENTAN
     Indication: PULMONARY ARTERIAL HYPERTENSION
     Route: 048
     Dates: start: 20091009
  6. RITALIN [Concomitant]
     Active Substance: METHYLPHENIDATE HYDROCHLORIDE
  7. COLCHICINE. [Concomitant]
     Active Substance: COLCHICINE
  8. LISINOPRIL. [Concomitant]
     Active Substance: LISINOPRIL
  9. LASIX [Concomitant]
     Active Substance: FUROSEMIDE
  10. PREDNISONE. [Concomitant]
     Active Substance: PREDNISONE
  11. IPRATROPIUM SPRAY [Concomitant]
  12. CELEBREX [Concomitant]
     Active Substance: CELECOXIB
  13. SEROQUEL [Concomitant]
     Active Substance: QUETIAPINE FUMARATE
  14. REVATIO [Concomitant]
     Active Substance: SILDENAFIL CITRATE
  15. FROVA [Concomitant]
     Active Substance: FROVATRIPTAN SUCCINATE
  16. FLONASE [Concomitant]
     Active Substance: FLUTICASONE PROPIONATE
  17. SKELAXIN [Concomitant]
     Active Substance: METAXALONE
  18. LORTAB [Concomitant]
     Active Substance: ACETAMINOPHEN\HYDROCODONE BITARTRATE
  19. TRAZODONE [Concomitant]
     Active Substance: TRAZODONE HYDROCHLORIDE
  20. COGENTIN [Concomitant]
     Active Substance: BENZTROPINE MESYLATE
  21. PROTONIX [Concomitant]
     Active Substance: PANTOPRAZOLE SODIUM
  22. LEXAPRO [Concomitant]
     Active Substance: ESCITALOPRAM OXALATE
  23. PHENERGAN [Concomitant]
     Active Substance: PROMETHAZINE HYDROCHLORIDE

REACTIONS (4)
  - Palpitations [Unknown]
  - Dyspnoea [Unknown]
  - Headache [Unknown]
  - Migraine [Unknown]
